FAERS Safety Report 9748931 (Version 2)
Quarter: 2014Q1

REPORT INFORMATION
  Report Type: Spontaneous
  Country: US (occurrence: US)
  Receive Date: 20131212
  Receipt Date: 20140212
  Transmission Date: 20141002
  Serious: Yes (Hospitalization)
  Sender: FDA-Public Use
  Company Number: US-BAYER-2013-151076

PATIENT
  Age: 24 Year
  Sex: Female
  Weight: 89.8 kg

DRUGS (3)
  1. MIRENA [Suspect]
     Indication: CONTRACEPTION
     Dosage: 20 MCG/24HR, CONT
     Route: 015
     Dates: start: 20080509, end: 20080517
  2. NOVOLOG [Concomitant]
     Indication: DIABETES MELLITUS
     Dosage: UNK
     Dates: start: 1996
  3. LANTUS [Concomitant]
     Indication: DIABETES MELLITUS
     Dosage: UNK
     Dates: start: 1996

REACTIONS (7)
  - Device dislocation [None]
  - Procedural pain [None]
  - Injury [None]
  - Emotional distress [None]
  - Abdominal pain [None]
  - Menorrhagia [None]
  - Abdominal pain lower [None]
